FAERS Safety Report 7222525-6 (Version None)
Quarter: 2011Q1

REPORT INFORMATION
  Report Type: 
  Country: None (occurrence: None)
  Receive Date: 20110106
  Receipt Date: 20110106
  Transmission Date: 20110831
  Serious: Yes (Other)
  Sender: FDA-Public Use
  Company Number: None

PATIENT
  Age: 69 Year
  Sex: Male
  Weight: 102.0593 kg

DRUGS (1)
  1. ANDRODERM [Suspect]
     Indication: BLOOD TESTOSTERONE DECREASED
     Dosage: 1 PATCH EVERY DAY/5MG ONCE A DAY
     Dates: start: 20101102, end: 20101122

REACTIONS (8)
  - PAIN [None]
  - TYPE III IMMUNE COMPLEX MEDIATED REACTION [None]
  - APPLICATION SITE RASH [None]
  - FEAR [None]
  - APPLICATION SITE PAIN [None]
  - APPLICATION SITE VESICLES [None]
  - APPLICATION SITE PRURITUS [None]
  - APPLICATION SITE ERYTHEMA [None]
